FAERS Safety Report 8852584 (Version 1)
Quarter: 2012Q4

REPORT INFORMATION
  Report Type: Report from Study
  Country: AU (occurrence: AU)
  Receive Date: 20121022
  Receipt Date: 20121022
  Transmission Date: 20130627
  Serious: Yes (Disabling, Other)
  Sender: FDA-Public Use
  Company Number: AU-ROCHE-1145734

PATIENT
  Sex: Female

DRUGS (5)
  1. TOCILIZUMAB [Suspect]
     Indication: RHEUMATOID ARTHRITIS
     Dosage: Dose: 400-800 mg
     Route: 042
     Dates: start: 20101129
  2. PRISTIQ [Concomitant]
     Indication: DEPRESSION
     Route: 048
  3. LIPEX [Concomitant]
     Indication: DEPRESSION
     Route: 048
  4. NEXIUM [Concomitant]
     Route: 048
  5. CARTIA (AUSTRALIA) [Concomitant]
     Route: 048

REACTIONS (8)
  - Cystitis interstitial [Not Recovered/Not Resolved]
  - Pruritus [Not Recovered/Not Resolved]
  - Eye pain [Not Recovered/Not Resolved]
  - Fatigue [Not Recovered/Not Resolved]
  - Blood cholesterol increased [Not Recovered/Not Resolved]
  - Malignant melanoma [Recovered/Resolved]
  - Weight increased [Unknown]
  - Lethargy [Not Recovered/Not Resolved]
